FAERS Safety Report 7832721-2 (Version None)
Quarter: 2011Q4

REPORT INFORMATION
  Report Type: 
  Country: None (occurrence: None)
  Receive Date: 20111024
  Receipt Date: 20111014
  Transmission Date: 20120403
  Serious: No
  Sender: FDA-Public Use
  Company Number: US-BIOGENIDEC-2011BI039387

PATIENT
  Age: 50 Year
  Sex: Female

DRUGS (2)
  1. TYSABRI [Suspect]
     Indication: MULTIPLE SCLEROSIS
     Route: 042
     Dates: start: 20090521
  2. TYSABRI [Suspect]
     Route: 042
     Dates: start: 20080321, end: 20081212

REACTIONS (2)
  - BLADDER DISORDER [None]
  - NAUSEA [None]
